FAERS Safety Report 4627680-X (Version None)
Quarter: 2005Q2

REPORT INFORMATION
  Report Type: 
  Country: None (occurrence: None)
  Receive Date: 20050406
  Receipt Date: 20050308
  Transmission Date: 20051028
  Serious: Yes (Death, Hospitalization)
  Sender: FDA-Public Use
  Company Number: 200511820US

PATIENT
  Age: 53 Year
  Sex: Male
  Weight: 67.6 kg

DRUGS (2)
  1. TAXOTERE [Suspect]
     Indication: SQUAMOUS CELL CARCINOMA
     Route: 042
     Dates: start: 20050225, end: 20050225
  2. ZD1839 [Suspect]
     Indication: SQUAMOUS CELL CARCINOMA
     Route: 048
     Dates: start: 20050303

REACTIONS (7)
  - DRUG TOXICITY [None]
  - GENERAL PHYSICAL HEALTH DETERIORATION [None]
  - HAEMOPTYSIS [None]
  - HYPOXIA [None]
  - LUNG INFILTRATION [None]
  - METASTASES TO LUNG [None]
  - PNEUMONITIS [None]
